FAERS Safety Report 14777641 (Version 1)
Quarter: 2018Q2

REPORT INFORMATION
  Report Type: Spontaneous
  Country: US (occurrence: US)
  Receive Date: 20180419
  Receipt Date: 20180419
  Transmission Date: 20180711
  Serious: No
  Sender: FDA-Public Use
  Company Number: US-PFIZER INC-2018156881

PATIENT
  Age: 30 Year
  Sex: Female

DRUGS (1)
  1. METHOTREXATE SODIUM. [Suspect]
     Active Substance: METHOTREXATE SODIUM
     Dosage: 0.4 ML, WEEKLY (0.4CC)
     Route: 058
     Dates: start: 201702, end: 20170530

REACTIONS (10)
  - Body temperature increased [Unknown]
  - Rash [Unknown]
  - Paradoxical drug reaction [Unknown]
  - Musculoskeletal stiffness [Unknown]
  - Arthralgia [Unknown]
  - Migraine [Unknown]
  - Pain [Unknown]
  - Photosensitivity reaction [Unknown]
  - Nausea [Unknown]
  - Dry mouth [Unknown]
